FAERS Safety Report 5895635-3 (Version None)
Quarter: 2008Q3

REPORT INFORMATION
  Report Type: 
  Country: None (occurrence: None)
  Receive Date: 20080924
  Receipt Date: 20080115
  Transmission Date: 20090109
  Serious: Yes (Other)
  Sender: FDA-Public Use
  Company Number: US-ASTRAZENECA-2006UW25768

PATIENT
  Age: 594 Month
  Sex: Male
  Weight: 86.2 kg

DRUGS (4)
  1. SEROQUEL [Suspect]
     Indication: ANXIETY
     Dosage: 200 MG - 600 MG
     Route: 048
     Dates: start: 19970101, end: 20061201
  2. SEROQUEL [Suspect]
     Indication: DEPRESSION
     Dosage: 200 MG - 600 MG
     Route: 048
     Dates: start: 19970101, end: 20061201
  3. SEROQUEL [Suspect]
     Indication: BIPOLAR DISORDER
     Dosage: 200 MG - 600 MG
     Route: 048
     Dates: start: 19970101, end: 20061201
  4. RISPERDAL [Suspect]

REACTIONS (2)
  - DIABETES MELLITUS INADEQUATE CONTROL [None]
  - DIABETIC COMA [None]
